FAERS Safety Report 5593501-4 (Version None)
Quarter: 2008Q1

REPORT INFORMATION
  Report Type: 
  Country: None (occurrence: None)
  Receive Date: 20080116
  Receipt Date: 20080114
  Transmission Date: 20080703
  Serious: Yes (Hospitalization)
  Sender: FDA-Public Use
  Company Number: US-BRISTOL-MYERS SQUIBB COMPANY-14039705

PATIENT
  Age: 44 Year
  Sex: Female

DRUGS (3)
  1. CARBOPLATIN [Suspect]
     Indication: OVARIAN CANCER
     Dosage: 792 MG IN 250 ML NORMAL SALINE (AUC 6).
  2. PACLITAXEL [Suspect]
     Indication: OVARIAN CANCER
     Dosage: 175 MG/M2 IN 500 ML SODIUM CHLORIDE (NORMAL SALINE).
  3. DEXAMETHASONE TAB [Concomitant]

REACTIONS (2)
  - RENAL FAILURE ACUTE [None]
  - RENAL HAEMORRHAGE [None]
